FAERS Safety Report 4559056-8 (Version None)
Quarter: 2005Q1

REPORT INFORMATION
  Report Type: 
  Country: None (occurrence: None)
  Receive Date: 20050121
  Receipt Date: 20050121
  Transmission Date: 20050727
  Serious: Yes (Hospitalization)
  Sender: FDA-Public Use
  Company Number: None

PATIENT
  Age: 49 Year
  Sex: Male
  Weight: 86.1834 kg

DRUGS (3)
  1. CLINDAYMYCIN  300 MG [Suspect]
     Indication: CELLULITIS
     Dosage: 300 MG   QID   ORAL
     Route: 048
     Dates: start: 20041203, end: 20050105
  2. CEFAZOLIN [Suspect]
     Indication: ARTHROPATHY
     Dosage: 1 GM    Q 8 HOURS   INTRAVENOU
     Route: 042
     Dates: start: 20041208, end: 20041214
  3. CEFAZOLIN [Suspect]
     Indication: ASEPTIC NECROSIS BONE
     Dosage: 1 GM    Q 8 HOURS   INTRAVENOU
     Route: 042
     Dates: start: 20041208, end: 20041214

REACTIONS (1)
  - DIARRHOEA [None]
